FAERS Safety Report 6619019-5 (Version None)
Quarter: 2010Q1

REPORT INFORMATION
  Report Type: 
  Country: None (occurrence: None)
  Receive Date: 20100308
  Receipt Date: 20100223
  Transmission Date: 20100710
  Serious: Yes (Hospitalization)
  Sender: FDA-Public Use
  Company Number: US-TYCO HEALTHCARE/MALLINCKRODT-T201000670

PATIENT
  Age: 61 Year
  Sex: Male

DRUGS (6)
  1. METHADOSE [Suspect]
     Indication: BACK PAIN
     Dosage: UNK
  2. HYDROMORPHONE HCL [Suspect]
     Indication: BACK PAIN
     Dosage: UNK
  3. OXYCODONE HCL [Suspect]
     Indication: BACK PAIN
     Dosage: UNK
  4. VENLAFAXINE [Suspect]
     Dosage: 100 MG, BID
  5. CIPROFLOXACIN HCL [Suspect]
     Dosage: UNK
  6. METOCLOPRAMIDE [Suspect]
     Indication: BACK PAIN
     Dosage: UNK

REACTIONS (2)
  - DRUG INTERACTION [None]
  - SEROTONIN SYNDROME [None]
